FAERS Safety Report 15773128 (Version 1)
Quarter: 2018Q4

REPORT INFORMATION
  Report Type: Spontaneous
  Country: US (occurrence: US)
  Receive Date: 20181228
  Receipt Date: 20181228
  Transmission Date: 20190205
  Serious: No
  Sender: FDA-Public Use
  Company Number: US-009507513-1812USA002584

PATIENT
  Age: 24 Year
  Sex: Female

DRUGS (3)
  1. NOXAFIL [Suspect]
     Active Substance: POSACONAZOLE
     Indication: TRICHOSPORON INFECTION
     Dosage: 300 MILLIGRAM, DAILY
     Route: 048
  2. ISAVUCONAZONIUM [Concomitant]
     Active Substance: ISAVUCONAZONIUM
     Dosage: 372 MILLIGRAM, DAILY
     Route: 042
  3. ACYCLOVIR. [Concomitant]
     Active Substance: ACYCLOVIR
     Route: 042

REACTIONS (1)
  - Product use in unapproved indication [Unknown]
